FAERS Safety Report 18097009 (Version 1)
Quarter: 2020Q3

REPORT INFORMATION
  Report Type: Spontaneous
  Country: US (occurrence: US)
  Receive Date: 20200731
  Receipt Date: 20200731
  Transmission Date: 20201103
  Serious: Yes (Life-Threatening, Hospitalization)
  Sender: FDA-Public Use
  Company Number: US-AUROBINDO-AUR-APL-2018-006199

PATIENT
  Age: 48 Year
  Sex: Female

DRUGS (1)
  1. CHLORAZOXAZONE [Suspect]
     Active Substance: CHLORZOXAZONE
     Indication: MUSCULOSKELETAL PAIN
     Dosage: 250 MG, TID
     Route: 065

REACTIONS (16)
  - Blood bilirubin increased [Unknown]
  - Transaminases increased [Unknown]
  - Acute hepatic failure [Unknown]
  - International normalised ratio increased [Unknown]
  - Liver transplant [Unknown]
  - Ocular icterus [Unknown]
  - Cholestasis [Unknown]
  - Coagulation factor VII level decreased [Unknown]
  - Prothrombin time prolonged [Unknown]
  - Hepatic encephalopathy [Unknown]
  - Blood albumin decreased [Unknown]
  - Coagulation factor V level decreased [Unknown]
  - Abdominal pain upper [Unknown]
  - Jaundice [Unknown]
  - Hepatic necrosis [Unknown]
  - Nausea [Unknown]
